FAERS Safety Report 8133437-8 (Version None)
Quarter: 2012Q1

REPORT INFORMATION
  Report Type: 
  Country: None (occurrence: None)
  Receive Date: 20120213
  Receipt Date: 20120208
  Transmission Date: 20120608
  Serious: Yes (Other)
  Sender: FDA-Public Use
  Company Number: US-AMGEN-USASP2011010695

PATIENT
  Age: 71 Year
  Sex: Female
  Weight: 80.272 kg

DRUGS (34)
  1. BENGAY [Concomitant]
     Dosage: UNK
     Route: 061
  2. OXYBUTYNIN [Concomitant]
     Dosage: 10 MG, QD
     Route: 048
  3. MAGNESIUM HYDROXIDE TAB [Concomitant]
     Indication: DYSPEPSIA
     Dosage: 30 ML, PRN
     Route: 048
  4. HUMILIN R [Concomitant]
     Indication: DIABETES MELLITUS
     Dosage: UNK, PRN
  5. GUIATUSS [Concomitant]
     Dosage: 100 MG, UNK
     Route: 048
  6. MI-ACID DOUBLE STRENGTH [Concomitant]
     Dosage: UNK
     Route: 048
  7. RENVELA [Concomitant]
     Dosage: 800 MG, TID
     Route: 048
  8. SIMVASTATIN [Concomitant]
     Dosage: 40 MG, QD
     Route: 048
  9. GENTAMICIN [Concomitant]
  10. PROLIA [Suspect]
     Indication: OSTEOPOROSIS POSTMENOPAUSAL
     Dosage: 60 MG, Q6MO
     Route: 058
     Dates: start: 20110204
  11. SPIRIVA [Concomitant]
     Dosage: 18 MUG, QD
     Route: 055
  12. PLAVIX [Concomitant]
     Dosage: 75 MG, QD
     Route: 048
  13. HUMALOG [Concomitant]
     Indication: DIABETES MELLITUS
     Dosage: 6 UNIT, QD
     Route: 058
  14. HUMALOG [Concomitant]
     Dosage: 12 UNIT, QD
     Route: 058
  15. ASPIRIN [Concomitant]
     Dosage: 81 MG, QD
     Route: 048
  16. NEPHRO-VITE RX [Concomitant]
     Dosage: 1 UNK, QD
     Route: 048
  17. TOPIRAMATE [Concomitant]
     Dosage: 100 MG, QHS
     Route: 048
  18. GUAIFENESIN [Concomitant]
     Indication: COUGH
     Dosage: 200 MG, PRN
  19. PHENAZOPYRIDINE HCL TAB [Concomitant]
     Dosage: 200 MG, UNK
  20. TUMS EX [Concomitant]
     Dosage: 2 UNK, UNK
  21. FERROUS SULFATE TAB [Concomitant]
     Dosage: 325 MG, QD
     Route: 048
  22. LANTUS [Concomitant]
     Dosage: 48 UNIT, QHS
     Route: 058
  23. PANTOPRAZOLE SODIUM [Concomitant]
     Dosage: 40 MG, QD
     Route: 048
  24. DOCUSATE SODIUM [Concomitant]
     Dosage: 200 MG, QHS
     Route: 048
  25. AMITRIPTYLINE HCL [Concomitant]
     Dosage: 50 MG, QD
     Route: 048
  26. VITAMIN D [Concomitant]
     Route: 048
  27. CALCIUM [Concomitant]
     Dosage: 657 MG, QID
  28. ACETAMINOPHEN [Concomitant]
     Indication: PAIN
     Dosage: 650 MG, PRN
     Route: 048
  29. BISACODYL [Concomitant]
     Dosage: 10 MG, QOD
     Route: 050
  30. GLUCAGEN [Concomitant]
     Dosage: 1 MG, PRN
     Route: 058
  31. ACETAMINOPHEN AND HYDROCODONE BITARTRATE [Concomitant]
     Dosage: UNK UNK, QWK
     Route: 048
  32. FLUOXETINE HYDROCHLORIDE [Concomitant]
     Dosage: 10 MG, QD
     Route: 048
  33. VENTOLIN HFA [Concomitant]
     Dosage: 2 UNK, QID
     Route: 048
  34. METOPROLOL TARTRATE [Concomitant]
     Dosage: 25 MG, BID

REACTIONS (3)
  - TETANY [None]
  - MUSCLE SPASMS [None]
  - HYPOCALCAEMIA [None]
